FAERS Safety Report 21540552 (Version 1)
Quarter: 2022Q4

REPORT INFORMATION
  Report Type: Report from Study
  Country: US (occurrence: US)
  Receive Date: 20221102
  Receipt Date: 20221102
  Transmission Date: 20230112
  Serious: Yes (Death)
  Sender: FDA-Public Use
  Company Number: US-TAIHO-2022-000953

PATIENT
  Age: 72 Year
  Sex: Male

DRUGS (1)
  1. LONSURF [Suspect]
     Active Substance: TIPIRACIL HYDROCHLORIDE\TRIFLURIDINE
     Indication: Rectal cancer
     Dosage: CYCLE 1
     Route: 048
     Dates: start: 20220912

REACTIONS (4)
  - Death [Fatal]
  - Blood bilirubin increased [Unknown]
  - Cytopenia [Unknown]
  - Chromaturia [Unknown]

NARRATIVE: CASE EVENT DATE: 20220101
